FAERS Safety Report 5757915-1 (Version None)
Quarter: 2008Q2

REPORT INFORMATION
  Report Type: 
  Country: None (occurrence: None)
  Receive Date: 20080602
  Receipt Date: 20080602
  Transmission Date: 20081010
  Serious: Yes (Disabling, Other)
  Sender: FDA-Public Use
  Company Number: None

PATIENT
  Age: 49 Year
  Sex: Male
  Weight: 106.5953 kg

DRUGS (1)
  1. NIASPAN [Suspect]
     Indication: HIGH DENSITY LIPOPROTEIN DECREASED
     Dosage: 2 GRAMS -2 TABLETS-ONCE PER DAY PO
     Route: 048
     Dates: start: 20070501, end: 20080527

REACTIONS (6)
  - BLOOD TRIGLYCERIDES INCREASED [None]
  - BURNING SENSATION [None]
  - ERYTHEMA [None]
  - FLUSHING [None]
  - HIGH DENSITY LIPOPROTEIN DECREASED [None]
  - PRURITUS [None]
